FAERS Safety Report 13731714 (Version 1)
Quarter: 2017Q3

REPORT INFORMATION
  Report Type: Report from Study
  Country: DE (occurrence: DE)
  Receive Date: 20170707
  Receipt Date: 20170707
  Transmission Date: 20171127
  Serious: Yes (Hospitalization)
  Sender: FDA-Public Use
  Company Number: DE-GILEAD-2017-0281286

PATIENT
  Age: 47 Year
  Sex: Male
  Weight: 72 kg

DRUGS (11)
  1. CIPROFLOXACIN. [Concomitant]
     Active Substance: CIPROFLOXACIN
     Dosage: 500 MG, BID
     Dates: start: 20160520, end: 20160529
  2. LEDIPASVIR/SOFOSBUVIR [Suspect]
     Active Substance: LEDIPASVIR\SOFOSBUVIR
     Indication: CHRONIC HEPATITIS C
     Dosage: 1 DF, QD
     Route: 048
     Dates: start: 20150116, end: 20150409
  3. METRONIDAZOL                       /00012501/ [Concomitant]
     Active Substance: METRONIDAZOLE
     Dosage: 400 MG, TID
     Dates: start: 20160520, end: 20160527
  4. METRONIDAZOL                       /00012501/ [Concomitant]
     Active Substance: METRONIDAZOLE
     Dosage: 400 MG, UNK
     Dates: start: 20170419
  5. TARDOCILLIN [Concomitant]
     Active Substance: PENICILLIN G BENZATHINE
     Dosage: 24 ML, BID
     Dates: start: 20160531, end: 20160531
  6. PREDNISOLON                        /00016201/ [Concomitant]
     Active Substance: PREDNISOLONE
     Dosage: 20 MG, UNK
     Dates: start: 20160531, end: 20160615
  7. NOVAMINSULFON [Concomitant]
     Active Substance: METAMIZOLE
     Dosage: 500 MG, UNK
     Dates: start: 20161215
  8. PERENTEROL                         /00243701/ [Concomitant]
     Dosage: 250 MG, UNK
     Dates: start: 20170419
  9. CITALOPRAM RATIOPHARM [Concomitant]
     Dosage: 20 MG, UNK
     Dates: start: 20170303
  10. DOXYCYCLIN                         /00055701/ [Concomitant]
     Active Substance: DOXYCYCLINE
     Dosage: 100 MG, BID
  11. CIPROFLOXACIN. [Concomitant]
     Active Substance: CIPROFLOXACIN
     Dosage: UNK
     Dates: start: 20170419, end: 20170425

REACTIONS (1)
  - Foreign body in gastrointestinal tract [Recovered/Resolved]

NARRATIVE: CASE EVENT DATE: 20161213
